FAERS Safety Report 9165231 (Version 2)
Quarter: 2013Q3

REPORT INFORMATION
  Report Type: Spontaneous
  Country: GB (occurrence: None)
  Receive Date: 20130227
  Receipt Date: 20130820
  Transmission Date: 20140515
  Serious: Yes (Other)
  Sender: FDA-Public Use
  Company Number: 2013MPI00088

PATIENT
  Age: 50 Year
  Sex: Male

DRUGS (2)
  1. ADCETRIS (BRENTUXIMAB VEDOTIN) INJECTION [Suspect]
     Indication: HODGKIN^S DISEASE
     Dates: start: 20110920, end: 201210
  2. GLUCOCORTICOSTEROIDS [Concomitant]

REACTIONS (4)
  - Tooth abscess [None]
  - Lower respiratory tract infection [None]
  - Neuropathy peripheral [None]
  - Rash maculo-papular [None]
